FAERS Safety Report 5972340-6 (Version None)
Quarter: 2008Q4

REPORT INFORMATION
  Report Type: 
  Country: None (occurrence: None)
  Receive Date: 20081201
  Receipt Date: 20080923
  Transmission Date: 20090506
  Serious: No
  Sender: FDA-Public Use
  Company Number: US-TEVA-177946USA

PATIENT
  Age: 71 Year
  Sex: Female

DRUGS (7)
  1. SALBUTAMOL SULFATE INHALATION, 0.09 MG [Suspect]
     Indication: EMPHYSEMA
     Route: 055
     Dates: start: 20080726
  2. BROVANA [Suspect]
     Indication: EMPHYSEMA
     Dosage: 15 UG/2ML
     Route: 055
     Dates: start: 20080731
  3. TIOTROPIUM BROMIDE [Concomitant]
  4. TRAMADOL HCL [Concomitant]
  5. VERAPAMIL [Concomitant]
  6. DYAZIDE [Concomitant]
  7. FLUTICASONE PROPIONATE [Concomitant]

REACTIONS (2)
  - INCREASED UPPER AIRWAY SECRETION [None]
  - THROAT IRRITATION [None]
